FAERS Safety Report 6693308-0 (Version None)
Quarter: 2010Q2

REPORT INFORMATION
  Report Type: 
  Country: None (occurrence: None)
  Receive Date: 20100422
  Receipt Date: 20100412
  Transmission Date: 20101027
  Serious: Yes (Other)
  Sender: FDA-Public Use
  Company Number: GB-ABBOTT-10P-167-0638359-00

PATIENT
  Age: 72 Year
  Sex: Female
  Weight: 97 kg

DRUGS (11)
  1. SUPRALIP [Suspect]
     Indication: DRUG USE FOR UNKNOWN INDICATION
     Dates: start: 20030501, end: 20060901
  2. SUPRALIP [Suspect]
     Dates: start: 20060901
  3. PIOGLITAZONE [Suspect]
     Indication: TYPE 2 DIABETES MELLITUS
     Route: 065
     Dates: start: 20070201, end: 20070501
  4. ROSIGLITAZONE [Suspect]
     Indication: DRUG USE FOR UNKNOWN INDICATION
     Route: 065
     Dates: start: 20050301, end: 20050601
  5. ROSIGLITAZONE [Suspect]
     Dates: start: 20050601, end: 20060901
  6. SIMVASTATIN [Suspect]
     Indication: DRUG USE FOR UNKNOWN INDICATION
     Route: 048
  7. ATORVASTATIN [Suspect]
     Indication: DRUG USE FOR UNKNOWN INDICATION
     Route: 065
     Dates: end: 20040201
  8. ROSUVASTATIN [Concomitant]
     Indication: DRUG USE FOR UNKNOWN INDICATION
     Route: 065
     Dates: start: 20040201, end: 20060601
  9. ROSUVASTATIN [Concomitant]
     Route: 065
     Dates: start: 20060601, end: 20060801
  10. ROSUVASTATIN [Concomitant]
     Route: 065
     Dates: start: 20060801
  11. METFORMIN [Concomitant]
     Indication: TYPE 2 DIABETES MELLITUS

REACTIONS (2)
  - HIGH DENSITY LIPOPROTEIN DECREASED [None]
  - MYALGIA [None]
